FAERS Safety Report 20771013 (Version 7)
Quarter: 2022Q3

REPORT INFORMATION
  Report Type: Spontaneous
  Country: US (occurrence: US)
  Receive Date: 20220429
  Receipt Date: 20220929
  Transmission Date: 20221026
  Serious: Yes (Other)
  Sender: FDA-Public Use
  Company Number: US-PFIZER INC-202101418338

PATIENT
  Age: 69 Year
  Sex: Female

DRUGS (4)
  1. ELELYSO [Suspect]
     Active Substance: TALIGLUCERASE ALFA
     Indication: Gaucher^s disease
     Dosage: 4000 IU (EVERY 2 WEEKS)
  2. ELELYSO [Suspect]
     Active Substance: TALIGLUCERASE ALFA
     Dosage: 6000 IU, CYCLIC ( (EVERY 4 WEEKS)
  3. ELELYSO [Suspect]
     Active Substance: TALIGLUCERASE ALFA
     Dosage: 4000 IU, CYCLIC (EVERY 4 WEEKS)
  4. ELELYSO [Suspect]
     Active Substance: TALIGLUCERASE ALFA
     Dosage: 4600 IU, CYCLIC (4600 UNITS IV EVERY 4 WEEKS)
     Route: 042

REACTIONS (21)
  - Hyperthyroidism [Unknown]
  - Hypertension [Unknown]
  - Haemoglobin decreased [Recovering/Resolving]
  - Haematocrit decreased [Recovering/Resolving]
  - Red blood cell count decreased [Recovering/Resolving]
  - Full blood count abnormal [Unknown]
  - Eye colour change [Recovering/Resolving]
  - COVID-19 [Unknown]
  - Somnolence [Not Recovered/Not Resolved]
  - Pain [Not Recovered/Not Resolved]
  - Paraesthesia oral [Unknown]
  - Tongue discomfort [Unknown]
  - Back pain [Unknown]
  - Decreased appetite [Unknown]
  - Liver disorder [Unknown]
  - Malaise [Unknown]
  - Drug hypersensitivity [Unknown]
  - Hypergammaglobulinaemia benign monoclonal [Unknown]
  - Weight increased [Unknown]
  - Off label use [Unknown]
  - Fatigue [Unknown]

NARRATIVE: CASE EVENT DATE: 20220101
